FAERS Safety Report 8818474 (Version 1)
Quarter: 2012Q4

REPORT INFORMATION
  Report Type: Spontaneous
  Country: GB (occurrence: None)
  Receive Date: 20121003
  Receipt Date: 20121003
  Transmission Date: 20130627
  Serious: No
  Sender: FDA-Public Use
  Company Number: 2012AP003134

PATIENT
  Age: 0 Day
  Sex: Female

DRUGS (3)
  1. SERTRALINE (SERTRALINE) (SERTRALINE) [Suspect]
     Indication: ANXIETY
     Route: 048
     Dates: start: 20120807, end: 20120813
  2. SERTRALINE (SERTRALINE) (SERTRALINE) [Suspect]
     Indication: PANIC ATTACKS
     Route: 048
     Dates: start: 20120807, end: 20120813
  3. METFORMIN (METFORMIN) [Concomitant]

REACTIONS (5)
  - Anxiety [None]
  - Disorientation [None]
  - Dizziness [None]
  - Medication error [None]
  - Visual impairment [None]
